FAERS Safety Report 7626013-4 (Version None)
Quarter: 2011Q3

REPORT INFORMATION
  Report Type: 
  Country: None (occurrence: None)
  Receive Date: 20110721
  Receipt Date: 20110719
  Transmission Date: 20111222
  Serious: Yes (Hospitalization)
  Sender: FDA-Public Use
  Company Number: GB-SANOFI-AVENTIS-2011SA039320

PATIENT
  Age: 72 Year
  Sex: Male
  Weight: 107.3 kg

DRUGS (9)
  1. CABAZITAXEL [Suspect]
     Indication: PROSTATE CANCER
     Route: 042
     Dates: start: 20110328, end: 20110328
  2. CABAZITAXEL [Suspect]
     Route: 042
     Dates: start: 20110606, end: 20110606
  3. METFORMIN HCL [Concomitant]
     Route: 048
     Dates: start: 20070101
  4. ENOXAPARIN [Concomitant]
     Dates: start: 20110309
  5. ZOLADEX [Concomitant]
  6. LERCANIDIPINE [Concomitant]
     Dates: start: 20070101
  7. PREDNISOLONE [Suspect]
     Indication: PROSTATE CANCER
     Route: 048
     Dates: start: 20110309
  8. GLICLAZIDE [Concomitant]
     Route: 048
     Dates: start: 20110220
  9. LOSARTAN [Concomitant]
     Route: 048
     Dates: start: 20070101

REACTIONS (3)
  - IMPLANT SITE REACTION [None]
  - URINARY TRACT INFECTION [None]
  - SEPSIS [None]
